FAERS Safety Report 10155354 (Version 1)
Quarter: 2014Q2

REPORT INFORMATION
  Report Type: Spontaneous
  Country: US (occurrence: None)
  Receive Date: 20140505
  Receipt Date: 20140505
  Transmission Date: 20141212
  Serious: Yes (Other)
  Sender: FDA-Public Use
  Company Number: None

PATIENT
  Age: 18 Year
  Sex: Female
  Weight: 69.4 kg

DRUGS (1)
  1. LAMOTRIGINE XR 200MG [Suspect]
     Indication: CONVULSION
     Dates: start: 2013, end: 201403

REACTIONS (1)
  - Convulsion [None]
